FAERS Safety Report 6152614-9 (Version None)
Quarter: 2009Q2

REPORT INFORMATION
  Report Type: 
  Country: None (occurrence: None)
  Receive Date: 20090413
  Receipt Date: 20090406
  Transmission Date: 20091009
  Serious: Yes (Hospitalization)
  Sender: FDA-Public Use
  Company Number: FR-AVENTIS-200911779EU

PATIENT
  Age: 73 Year
  Sex: Female

DRUGS (5)
  1. INDAPAMIDE [Suspect]
     Route: 048
     Dates: end: 20080801
  2. ASPIRIN [Concomitant]
  3. ATENOLOL [Concomitant]
  4. CAPTOPRIL [Concomitant]
  5. SIMVASTATIN [Concomitant]

REACTIONS (4)
  - ATRIAL FIBRILLATION [None]
  - HYPOKALAEMIA [None]
  - HYPONATRAEMIA [None]
  - PYREXIA [None]
